FAERS Safety Report 10142700 (Version 1)
Quarter: 2014Q2

REPORT INFORMATION
  Report Type: Spontaneous
  Country: US (occurrence: None)
  Receive Date: 20140425
  Receipt Date: 20140425
  Transmission Date: 20141212
  Serious: Yes (Disabling)
  Sender: FDA-Public Use
  Company Number: 2014SA022217

PATIENT
  Age: 59 Year
  Sex: Female

DRUGS (2)
  1. LANTUS SOLOSTAR [Suspect]
     Indication: DIABETES MELLITUS
     Dosage: 30 UNIT(S)
     Route: 051
  2. SOLOSTAR [Suspect]
     Indication: DEVICE THERAPY

REACTIONS (5)
  - Back injury [None]
  - Blood glucose increased [None]
  - Device malfunction [None]
  - Wrong technique in drug usage process [None]
  - Drug interaction [None]
